FAERS Safety Report 5011134-5 (Version None)
Quarter: 2006Q2

REPORT INFORMATION
  Report Type: 
  Country: None (occurrence: None)
  Receive Date: 20060523
  Receipt Date: 20060512
  Transmission Date: 20061013
  Serious: Yes (Hospitalization)
  Sender: FDA-Public Use
  Company Number: SEWYE697926MAY05

PATIENT
  Age: 40 Year
  Sex: Female

DRUGS (12)
  1. EFFEXOR [Suspect]
     Indication: BIPOLAR I DISORDER
     Dosage: SEE IMAGE
     Route: 048
     Dates: start: 20030228, end: 20030303
  2. EFFEXOR [Suspect]
     Indication: BIPOLAR I DISORDER
     Dosage: SEE IMAGE
     Route: 048
     Dates: start: 20030303, end: 20031008
  3. EFFEXOR [Suspect]
     Indication: BIPOLAR I DISORDER
     Dosage: SEE IMAGE
     Route: 048
     Dates: start: 20031008, end: 20031219
  4. EFFEXOR [Suspect]
     Indication: BIPOLAR I DISORDER
     Dosage: SEE IMAGE
     Route: 048
     Dates: start: 20031219, end: 20040302
  5. EFFEXOR [Suspect]
     Indication: BIPOLAR I DISORDER
     Dosage: SEE IMAGE
     Route: 048
     Dates: start: 20040302, end: 20040930
  6. TRIPTYZOL                (AMITRIPTYLINE HYDROCHLORIDE) [Suspect]
     Dosage: 25 MG DAILY
     Route: 048
     Dates: start: 20000101, end: 20041001
  7. LITHIONIT        (LITHIUM SULFATE) [Concomitant]
  8. MOVICOL           (MACROGOL/POTASSIUM CHLORIDE/SODIUM BICARBONATE/SODI [Concomitant]
  9. OMEPRAZOLE [Concomitant]
  10. PROPAVAN              (PROPIOMAZINE MALEATE) [Concomitant]
  11. BEHEPAN            (CYANCOBALAMIN) [Concomitant]
  12. COMBIVENT [Concomitant]

REACTIONS (3)
  - CARDIAC FAILURE [None]
  - ELECTROCARDIOGRAM QT CORRECTED INTERVAL PROLONGED [None]
  - PNEUMONIA [None]
